FAERS Safety Report 22228665 (Version 2)
Quarter: 2023Q2

REPORT INFORMATION
  Report Type: Spontaneous
  Country: US (occurrence: US)
  Receive Date: 20230419
  Receipt Date: 20230612
  Transmission Date: 20230722
  Serious: No
  Sender: FDA-Public Use
  Company Number: US-PFIZER INC-202300161360

PATIENT
  Age: 60 Year
  Sex: Female
  Weight: 53.061 kg

DRUGS (1)
  1. PAXLOVID [Suspect]
     Active Substance: NIRMATRELVIR\RITONAVIR
     Indication: COVID-19 treatment
     Dosage: [PF-07321332 300 MG]/[RITONAVIR 100 MG]; DAILY X 5 DAYS
     Route: 048
     Dates: start: 20230331, end: 20230405

REACTIONS (4)
  - COVID-19 [Not Recovered/Not Resolved]
  - Disease recurrence [Not Recovered/Not Resolved]
  - Hypersensitivity [Unknown]
  - Off label use [Unknown]

NARRATIVE: CASE EVENT DATE: 20230331
